FAERS Safety Report 12949642 (Version 5)
Quarter: 2017Q3

REPORT INFORMATION
  Report Type: Report from Study
  Country: JP (occurrence: JP)
  Receive Date: 20161117
  Receipt Date: 20170823
  Transmission Date: 20171127
  Serious: Yes (Other)
  Sender: FDA-Public Use
  Company Number: PHJP2016JP000742

PATIENT
  Age: 81 Year
  Sex: Female

DRUGS (9)
  1. VELCADE [Concomitant]
     Active Substance: BORTEZOMIB
     Dosage: 1.3 MG/M2, QW
     Route: 058
     Dates: start: 20160112, end: 20160307
  2. SOLITAX-H [Concomitant]
     Indication: DECREASED APPETITE
     Dosage: 1000 ML, QD
     Route: 065
     Dates: end: 20160226
  3. BFLUID [Concomitant]
     Active Substance: AMINO ACIDS\DEXTROSE\ELECTROLYTES NOS\VITAMINS
     Indication: DECREASED APPETITE
     Dosage: 500 MG, QD
     Route: 065
     Dates: end: 20160226
  4. FARYDAK [Suspect]
     Active Substance: PANOBINOSTAT
     Dosage: 10 MG, QD
     Route: 048
     Dates: start: 20151211, end: 20151231
  5. FARYDAK [Suspect]
     Active Substance: PANOBINOSTAT
     Dosage: 10 MG, QD
     Route: 048
     Dates: start: 20160216, end: 20160307
  6. DEXAMETHASONE. [Concomitant]
     Active Substance: DEXAMETHASONE
     Indication: PLASMA CELL MYELOMA
     Dosage: 20 MG, UNK
     Route: 048
     Dates: start: 20151211, end: 20160307
  7. VELCADE [Concomitant]
     Active Substance: BORTEZOMIB
     Indication: PLASMA CELL MYELOMA
     Dosage: 1.3 MG/M2, QW2
     Route: 058
     Dates: start: 20151211, end: 20151231
  8. FARYDAK [Suspect]
     Active Substance: PANOBINOSTAT
     Indication: PLASMA CELL MYELOMA
     Dosage: 20 MG, QD
     Route: 048
     Dates: start: 20151211, end: 20151231
  9. FARYDAK [Suspect]
     Active Substance: PANOBINOSTAT
     Dosage: 10 MG, QD
     Route: 048
     Dates: start: 20160112, end: 20160201

REACTIONS (8)
  - Decreased appetite [Recovered/Resolved]
  - Platelet count decreased [Recovered/Resolved]
  - Enteritis infectious [Recovered/Resolved]
  - Diarrhoea [Recovering/Resolving]
  - Anaemia [Recovered/Resolved]
  - Concomitant disease aggravated [Recovered/Resolved]
  - Vomiting [Recovered/Resolved]
  - Blood creatinine increased [Recovered/Resolved]

NARRATIVE: CASE EVENT DATE: 20151217
